FAERS Safety Report 4907445-1 (Version None)
Quarter: 2006Q1

REPORT INFORMATION
  Report Type: 
  Country: None (occurrence: None)
  Receive Date: 20060208
  Receipt Date: 20060208
  Transmission Date: 20060701
  Serious: No
  Sender: FDA-Public Use
  Company Number: None

PATIENT
  Age: 47 Year
  Sex: Female
  Weight: 74.8435 kg

DRUGS (1)
  1. AMBIEN [Suspect]

REACTIONS (4)
  - ANTEROGRADE AMNESIA [None]
  - INCOHERENT [None]
  - REFUSAL OF TREATMENT BY PATIENT [None]
  - SLEEP WALKING [None]
